FAERS Safety Report 23596878 (Version 1)
Quarter: 2024Q1

REPORT INFORMATION
  Report Type: Spontaneous
  Country: US (occurrence: US)
  Receive Date: 20240305
  Receipt Date: 20240305
  Transmission Date: 20240410
  Serious: No
  Sender: FDA-Public Use
  Company Number: US-FreseniusKabi-FK202403264

PATIENT
  Age: 64 Year
  Sex: Female

DRUGS (2)
  1. BUPIVACAINE [Suspect]
     Active Substance: BUPIVACAINE
     Indication: Product used for unknown indication
     Dosage: CONCENTRATION: 0.784 MG/DAY
     Route: 037
  2. PRIALT [Suspect]
     Active Substance: ZICONOTIDE ACETATE
     Indication: Product used for unknown indication
     Dosage: CONCENTRATION: 5 MCG/ML? PRIALT (ZICONOTIDE) INTRATHECAL INFUSION
     Route: 037

REACTIONS (2)
  - Off label use [Unknown]
  - Drug ineffective [Unknown]
